FAERS Safety Report 8530070-0 (Version None)
Quarter: 2012Q3

REPORT INFORMATION
  Report Type: 
  Country: None (occurrence: None)
  Receive Date: 20120723
  Receipt Date: 20120712
  Transmission Date: 20120928
  Serious: Yes (Other)
  Sender: FDA-Public Use
  Company Number: US-BAYER-2012-071107

PATIENT
  Age: 47 Year
  Sex: Male
  Weight: 113 kg

DRUGS (6)
  1. MULTI-VITAMIN [Concomitant]
  2. MILK THISTLE [Concomitant]
  3. VITAMIN D [Concomitant]
  4. ALEVE (CAPLET) [Suspect]
     Indication: BACK PAIN
     Dosage: 2 DF, QD
     Route: 048
     Dates: start: 20120710
  5. VITAMIN B COMPLEX CAP [Concomitant]
  6. GINKGO BILOBA [Concomitant]

REACTIONS (3)
  - DYSURIA [None]
  - CHROMATURIA [None]
  - BLOOD URINE PRESENT [None]
